FAERS Safety Report 20668284 (Version 1)
Quarter: 2022Q2

REPORT INFORMATION
  Report Type: Spontaneous
  Country: FR (occurrence: FR)
  Receive Date: 20220404
  Receipt Date: 20220404
  Transmission Date: 20220721
  Serious: Yes (Hospitalization, Congenital Anomaly, Other)
  Sender: FDA-Public Use
  Company Number: FR-ABBVIE-22K-056-4341892-00

PATIENT
  Sex: Male

DRUGS (2)
  1. VALPROATE SODIUM [Suspect]
     Active Substance: VALPROATE SODIUM
     Indication: Maternal exposure timing unspecified
     Route: 064
  2. FOLIC ACID [Concomitant]
     Active Substance: FOLIC ACID
     Indication: Product used for unknown indication

REACTIONS (24)
  - Cryptorchism [Unknown]
  - Cardiac murmur [Unknown]
  - Bronchitis [Unknown]
  - Ear infection [Unknown]
  - Nasopharyngitis [Unknown]
  - Inguinal hernia [Unknown]
  - Astigmatism [Unknown]
  - Hypotonia [Unknown]
  - Dysgraphia [Unknown]
  - Reading disorder [Unknown]
  - Tympanoplasty [Unknown]
  - Anxiety [Unknown]
  - Psychiatric symptom [Unknown]
  - Apathy [Unknown]
  - Mobility decreased [Unknown]
  - Bradykinesia [Unknown]
  - Dysgraphia [Unknown]
  - Dysmorphism [Unknown]
  - Apraxia [Unknown]
  - Disturbance in attention [Unknown]
  - Ventricular septal defect [Unknown]
  - Visual impairment [Unknown]
  - Psychomotor skills impaired [Unknown]
  - Foetal exposure during pregnancy [Unknown]

NARRATIVE: CASE EVENT DATE: 20071128
